FAERS Safety Report 7654029-0 (Version None)
Quarter: 2011Q3

REPORT INFORMATION
  Report Type: 
  Country: None (occurrence: None)
  Receive Date: 20110803
  Receipt Date: 20110722
  Transmission Date: 20111222
  Serious: Yes (Other)
  Sender: FDA-Public Use
  Company Number: PHHY2011US66747

PATIENT
  Sex: Female
  Weight: 46.35 kg

DRUGS (1)
  1. EXJADE [Suspect]
     Indication: BLOOD TEST ABNORMAL
     Dosage: 1500 MG, BID
     Route: 048
     Dates: start: 20100401

REACTIONS (2)
  - PELVIC FRACTURE [None]
  - FALL [None]
